FAERS Safety Report 14743232 (Version 2)
Quarter: 2018Q2

REPORT INFORMATION
  Report Type: Spontaneous
  Country: US (occurrence: US)
  Receive Date: 20180410
  Receipt Date: 20180510
  Transmission Date: 20180711
  Serious: No
  Sender: FDA-Public Use
  Company Number: US-009507513-1804USA000413

PATIENT
  Sex: Female
  Weight: 73.02 kg

DRUGS (1)
  1. NEXPLANON [Suspect]
     Active Substance: ETONOGESTREL
     Indication: CONTRACEPTION
     Dosage: 68 MG, ONE TIME
     Route: 023
     Dates: start: 20171227

REACTIONS (4)
  - Adverse drug reaction [Unknown]
  - Mood altered [Unknown]
  - Weight increased [Unknown]
  - Menstruation irregular [Unknown]
